FAERS Safety Report 9602047 (Version 2)
Quarter: 2014Q2

REPORT INFORMATION
  Report Type: Spontaneous
  Country: IT (occurrence: IT)
  Receive Date: 20131007
  Receipt Date: 20140404
  Transmission Date: 20141212
  Serious: Yes (Hospitalization)
  Sender: FDA-Public Use
  Company Number: IT-SA-2013SA095811

PATIENT
  Age: 65 Year
  Sex: Male
  Weight: 85 kg

DRUGS (2)
  1. JEVTANA [Suspect]
     Indication: PROSTATE CANCER
     Dosage: STRENGTH-60 MG
     Route: 042
     Dates: start: 20130718, end: 20130718
  2. OXYCONTIN [Suspect]
     Indication: PAIN
     Dosage: STRENGTH: 40 MG
     Route: 048
     Dates: start: 20130718, end: 20130803

REACTIONS (3)
  - Pneumonia [Unknown]
  - Hyperpyrexia [Unknown]
  - Respiratory depression [Unknown]
